FAERS Safety Report 14156018 (Version 11)
Quarter: 2021Q1

REPORT INFORMATION
  Report Type: Report from Study
  Country: None (occurrence: US)
  Receive Date: 20171103
  Receipt Date: 20210301
  Transmission Date: 20210419
  Serious: Yes (Hospitalization, Other)
  Sender: FDA-Public Use
  Company Number: US-ABBVIE-17K-163-1925529-00

PATIENT
  Sex: Female
  Weight: 114.86 kg

DRUGS (16)
  1. GABAPENTIN. [Concomitant]
     Active Substance: GABAPENTIN
     Indication: PAIN IN EXTREMITY
  2. BACLOFEN. [Concomitant]
     Active Substance: BACLOFEN
     Indication: NECK PAIN
  3. TOLTERODINE [Concomitant]
     Active Substance: TOLTERODINE
     Indication: URINARY INCONTINENCE
  4. CALCIUM [Concomitant]
     Active Substance: CALCIUM
     Indication: MINERAL SUPPLEMENTATION
  5. ALLEGRA?D [Concomitant]
     Active Substance: FEXOFENADINE HYDROCHLORIDE\PSEUDOEPHEDRINE HYDROCHLORIDE
     Indication: PRODUCT USED FOR UNKNOWN INDICATION
  6. HUMIRA [Suspect]
     Active Substance: ADALIMUMAB
     Route: 058
     Dates: start: 20161030, end: 2017
  7. HUMIRA [Suspect]
     Active Substance: ADALIMUMAB
     Route: 058
     Dates: start: 20170323, end: 2017
  8. METHOTREXATE. [Concomitant]
     Active Substance: METHOTREXATE
     Indication: RHEUMATOID ARTHRITIS
  9. HUMIRA [Suspect]
     Active Substance: ADALIMUMAB
     Route: 058
     Dates: start: 20120301, end: 2016
  10. HUMIRA [Suspect]
     Active Substance: ADALIMUMAB
     Indication: RHEUMATOID ARTHRITIS
     Dosage: CITRATE FREE
     Route: 058
  11. AMLODIPINE [Concomitant]
     Active Substance: AMLODIPINE BESYLATE
     Indication: PRODUCT USED FOR UNKNOWN INDICATION
  12. HUMIRA [Suspect]
     Active Substance: ADALIMUMAB
     Route: 058
     Dates: start: 20170614
  13. VESICARE [Suspect]
     Active Substance: SOLIFENACIN SUCCINATE
     Indication: URINARY INCONTINENCE
     Route: 065
  14. HUMIRA [Suspect]
     Active Substance: ADALIMUMAB
     Indication: RHEUMATOID ARTHRITIS
     Route: 058
     Dates: start: 2005, end: 2011
  15. ZYRTEC [Concomitant]
     Active Substance: CETIRIZINE HYDROCHLORIDE
     Indication: PRODUCT USED FOR UNKNOWN INDICATION
  16. ACTEMRA [Concomitant]
     Active Substance: TOCILIZUMAB
     Indication: RHEUMATOID ARTHRITIS

REACTIONS (56)
  - Arthritis [Recovering/Resolving]
  - Weight increased [Not Recovered/Not Resolved]
  - Temperature intolerance [Recovered/Resolved]
  - Influenza [Not Recovered/Not Resolved]
  - Spinal pain [Unknown]
  - Unevaluable event [Unknown]
  - Dust allergy [Unknown]
  - Joint swelling [Not Recovered/Not Resolved]
  - Intervertebral disc degeneration [Not Recovered/Not Resolved]
  - Back pain [Not Recovered/Not Resolved]
  - Arthralgia [Unknown]
  - Pain in extremity [Unknown]
  - Cervical radiculopathy [Unknown]
  - Intervertebral disc protrusion [Recovered/Resolved]
  - Post procedural complication [Recovering/Resolving]
  - Fatigue [Recovered/Resolved]
  - Hepatic steatosis [Recovered/Resolved]
  - Hepatic steatosis [Unknown]
  - Fibromyalgia [Unknown]
  - Confusional state [Not Recovered/Not Resolved]
  - Arthralgia [Unknown]
  - Hypersensitivity [Not Recovered/Not Resolved]
  - Hypersensitivity [Recovered/Resolved]
  - Pain [Recovered/Resolved]
  - Sleep apnoea syndrome [Recovered/Resolved]
  - Bursitis [Recovered/Resolved]
  - Joint stiffness [Unknown]
  - Sinusitis [Recovered/Resolved]
  - Asthenia [Unknown]
  - Musculoskeletal disorder [Recovered/Resolved]
  - Toothache [Unknown]
  - Drug hypersensitivity [Unknown]
  - Hypersensitivity [Recovered/Resolved]
  - Sinusitis [Recovered/Resolved]
  - Muscle spasms [Unknown]
  - Spinal operation [Recovered/Resolved]
  - Overweight [Unknown]
  - Vitamin D deficiency [Recovering/Resolving]
  - Urinary incontinence [Recovering/Resolving]
  - Thinking abnormal [Unknown]
  - Temperature intolerance [Recovered/Resolved]
  - Hepatic enzyme increased [Unknown]
  - Pain [Unknown]
  - Mycotic allergy [Unknown]
  - Intervertebral disc protrusion [Not Recovered/Not Resolved]
  - Bursitis [Not Recovered/Not Resolved]
  - Increased bronchial secretion [Not Recovered/Not Resolved]
  - Hyperhidrosis [Unknown]
  - Neuralgia [Not Recovered/Not Resolved]
  - Pneumonia [Recovered/Resolved]
  - Sinusitis [Recovered/Resolved]
  - Sinusitis [Unknown]
  - Nasopharyngitis [Not Recovered/Not Resolved]
  - Nasal discomfort [Not Recovered/Not Resolved]
  - Limb discomfort [Unknown]
  - Dyspnoea [Unknown]

NARRATIVE: CASE EVENT DATE: 2005
